FAERS Safety Report 18399493 (Version 1)
Quarter: 2020Q4

REPORT INFORMATION
  Report Type: Spontaneous
  Country: IT (occurrence: IT)
  Receive Date: 20201019
  Receipt Date: 20201019
  Transmission Date: 20210114
  Serious: Yes (Life-Threatening, Other)
  Sender: FDA-Public Use
  Company Number: IT-PFIZER INC-2020398124

PATIENT
  Age: 54 Year
  Sex: Female

DRUGS (6)
  1. ANASTRAZOLE DENK [Concomitant]
     Active Substance: ANASTROZOLE
     Indication: HORMONE THERAPY
     Dosage: 1 MG, 1X/DAY
     Dates: start: 200207
  2. EPIRUBICIN HCL [Suspect]
     Active Substance: EPIRUBICIN HYDROCHLORIDE
     Dosage: UNK, (EVERY 3 WEEKS/ REDUCED TO 75% OF THE TOTAL DOSE IN THE SECOND, THIRD AND FOURTH CYCLES)
     Dates: start: 200207
  3. METHOTREXATE SODIUM. [Concomitant]
     Active Substance: METHOTREXATE SODIUM
     Indication: INVASIVE LOBULAR BREAST CARCINOMA
     Dosage: UNK, CYCLIC (DAY 1-8 EVERY 4 WEEKS FOR 4 CYCLES)
     Dates: start: 200207
  4. CYCLOPHOSPHAMIDE. [Concomitant]
     Active Substance: CYCLOPHOSPHAMIDE
     Indication: INVASIVE LOBULAR BREAST CARCINOMA
     Dosage: UNK, CYCLIC (DAY 1-8 EVERY 4 WEEKS FOR 4 CYCLES)
     Dates: start: 200207
  5. EPIRUBICIN HCL [Suspect]
     Active Substance: EPIRUBICIN HYDROCHLORIDE
     Indication: INVASIVE LOBULAR BREAST CARCINOMA
     Dosage: 120 MG/M2, CYCLIC (EVERY 3 WEEKS)
     Dates: start: 200207
  6. FLUOROURACIL. [Concomitant]
     Active Substance: FLUOROURACIL
     Indication: INVASIVE LOBULAR BREAST CARCINOMA
     Dosage: UNK, CYCLIC (DAY 1-8 EVERY 4 WEEKS FOR 4 CYCLES)
     Dates: start: 200207

REACTIONS (2)
  - Cardiac perfusion defect [Unknown]
  - Myelosuppression [Unknown]
